FAERS Safety Report 20923828 (Version 1)
Quarter: 2022Q2

REPORT INFORMATION
  Report Type: Spontaneous
  Country: US (occurrence: US)
  Receive Date: 20220607
  Receipt Date: 20220607
  Transmission Date: 20220720
  Serious: No
  Sender: FDA-Public Use
  Company Number: US-TARO PHARMACEUTICALS USA INC.-2021TAR00923

PATIENT

DRUGS (3)
  1. CLOTRIMAZOLE [Suspect]
     Active Substance: CLOTRIMAZOLE
     Indication: Vulvovaginal pruritus
     Dosage: 1DOSE/24HOUR, ONCE A NIGHT FOR 3 DAYS, 1/3 APPLICATOR FULL FOR 3 NIGHTS (ONLY DID 2 NIGHTS SO FAR)
     Route: 067
     Dates: start: 20210824
  2. CLOTRIMAZOLE [Suspect]
     Active Substance: CLOTRIMAZOLE
     Indication: Vulvovaginal pain
  3. CLOTRIMAZOLE [Suspect]
     Active Substance: CLOTRIMAZOLE
     Indication: Vulvovaginal mycotic infection

REACTIONS (3)
  - Administration site pain [Not Recovered/Not Resolved]
  - Incorrect dose administered [Unknown]
  - Product packaging issue [Unknown]

NARRATIVE: CASE EVENT DATE: 20210824
